FAERS Safety Report 14198340 (Version 1)
Quarter: 2017Q4

REPORT INFORMATION
  Report Type: Spontaneous
  Country: US (occurrence: US)
  Receive Date: 20171117
  Receipt Date: 20171117
  Transmission Date: 20180321
  Serious: Yes (Hospitalization)
  Sender: FDA-Public Use
  Company Number: US-SHIRE-US201729274

PATIENT
  Age: 3 Year
  Sex: Male

DRUGS (2)
  1. ONCASPAR [Suspect]
     Active Substance: PEGASPARGASE
     Dosage: 1600 IU, UNK
     Route: 042
     Dates: start: 20170918, end: 20170918
  2. ONCASPAR [Suspect]
     Active Substance: PEGASPARGASE
     Indication: ACUTE LYMPHOCYTIC LEUKAEMIA
     Dosage: 1500 IU, UNK
     Route: 042
     Dates: start: 201704

REACTIONS (5)
  - Hypertension [Recovering/Resolving]
  - Lip swelling [Recovered/Resolved]
  - Cough [Recovering/Resolving]
  - Erythema [Recovered/Resolved]
  - Crying [Recovering/Resolving]

NARRATIVE: CASE EVENT DATE: 20170918
